FAERS Safety Report 8590452 (Version 3)
Quarter: 2014Q1

REPORT INFORMATION
  Report Type: Spontaneous
  Country: US (occurrence: US)
  Receive Date: 20120601
  Receipt Date: 20140116
  Transmission Date: 20141002
  Serious: No
  Sender: FDA-Public Use
  Company Number: US-ASTRAZENECA-2012SE34452

PATIENT
  Age: 48 Year
  Sex: Male

DRUGS (15)
  1. NEXIUM [Suspect]
     Indication: GASTROOESOPHAGEAL REFLUX DISEASE
     Route: 048
     Dates: start: 2002
  2. NEXIUM [Suspect]
     Indication: GASTROOESOPHAGEAL REFLUX DISEASE
     Route: 048
     Dates: start: 20020716
  3. ACIPHEX [Concomitant]
     Indication: GASTROOESOPHAGEAL REFLUX DISEASE
     Dates: start: 200708, end: 200712
  4. TAGAMENT OTC [Concomitant]
  5. CELEBREX [Concomitant]
  6. BENICAR [Concomitant]
     Indication: HYPERTENSION
  7. SINGULAIR [Concomitant]
     Indication: MULTIPLE ALLERGIES
  8. FLUTICASONE [Concomitant]
     Indication: MULTIPLE ALLERGIES
  9. ZEDIA [Concomitant]
     Indication: BLOOD CHOLESTEROL ABNORMAL
  10. PRAVASTATIN [Concomitant]
     Indication: BLOOD CHOLESTEROL ABNORMAL
  11. TRILIPIX [Concomitant]
     Indication: BLOOD CHOLESTEROL ABNORMAL
  12. MIRTAZAPINE [Concomitant]
  13. ZYRTEC [Concomitant]
     Dates: start: 20030119
  14. PREDNISONE [Concomitant]
     Dates: start: 20030522
  15. CEPHALEXIN [Concomitant]
     Dates: start: 20040801

REACTIONS (7)
  - Osteoporosis [Unknown]
  - Bone disorder [Unknown]
  - Multiple fractures [Unknown]
  - Hand fracture [Unknown]
  - Osteopenia [Unknown]
  - Fatigue [Unknown]
  - Fall [Unknown]
